FAERS Safety Report 9396318 (Version 1)
Quarter: 2013Q3

REPORT INFORMATION
  Report Type: Spontaneous
  Country: CA (occurrence: CA)
  Receive Date: 20130711
  Receipt Date: 20130711
  Transmission Date: 20140515
  Serious: Yes (Hospitalization)
  Sender: FDA-Public Use
  Company Number: CA-BAXTER-2013BAX025978

PATIENT
  Age: 51 Year
  Sex: Male

DRUGS (3)
  1. DIANEAL PD4 SOLUTION WITH 1.5% DEXTROSE AND 2.5 MEQ/L CALCIUM [Suspect]
     Indication: RENAL DISORDER
     Route: 033
     Dates: start: 201102
  2. DIANEAL PD4 SOLUTION WITH 2.5% DEXTROSE AND 2.5 MEQ/L CALCIUM [Suspect]
     Indication: RENAL DISORDER
     Route: 033
     Dates: start: 201102
  3. EXTRANEAL [Suspect]
     Indication: RENAL DISORDER
     Route: 033
     Dates: start: 201102

REACTIONS (2)
  - Diabetic vascular disorder [Not Recovered/Not Resolved]
  - Renal disorder [Not Recovered/Not Resolved]
